FAERS Safety Report 6616230-4 (Version None)
Quarter: 2010Q1

REPORT INFORMATION
  Report Type: 
  Country: None (occurrence: None)
  Receive Date: 20100305
  Receipt Date: 20100222
  Transmission Date: 20100710
  Serious: Yes (Other)
  Sender: FDA-Public Use
  Company Number: NZ-WATSON-2010-02439

PATIENT
  Age: 78 Year
  Sex: Male

DRUGS (2)
  1. FLUOROURACIL [Suspect]
     Indication: COLORECTAL CANCER
     Dosage: 370 MG/M2, 1/WEEK
     Route: 042
  2. FOLINIC ACID [Concomitant]
     Indication: COLORECTAL CANCER
     Dosage: 20 MG/M2, 1/WEEK
     Route: 042

REACTIONS (2)
  - DRUG LEVEL CHANGED [None]
  - PALMAR-PLANTAR ERYTHRODYSAESTHESIA SYNDROME [None]
